FAERS Safety Report 24820524 (Version 1)
Quarter: 2025Q1

REPORT INFORMATION
  Report Type: Spontaneous
  Country: US (occurrence: US)
  Receive Date: 20250108
  Receipt Date: 20250108
  Transmission Date: 20250408
  Serious: No
  Sender: MERCK
  Company Number: US-009507513-2501USA000634

PATIENT
  Sex: Male

DRUGS (1)
  1. KEYTRUDA [Suspect]
     Active Substance: PEMBROLIZUMAB
     Dosage: 100 MILLIGRAM, EVERY 4 WEEKS, 1 INJECTION EVERY MONTH

REACTIONS (3)
  - Incorrect dosage administered [Unknown]
  - Product use issue [Unknown]
  - No adverse event [Unknown]
